FAERS Safety Report 5120822-1 (Version None)
Quarter: 2006Q4

REPORT INFORMATION
  Report Type: 
  Country: None (occurrence: None)
  Receive Date: 20061005
  Receipt Date: 20060606
  Transmission Date: 20070319
  Serious: Yes (Other)
  Sender: FDA-Public Use
  Company Number: PHEH2006US07530

PATIENT
  Age: 72 Year
  Sex: Female

DRUGS (4)
  1. FOSAMAX [Concomitant]
  2. CALCIUM GLUCONATE [Concomitant]
  3. FEMARA [Suspect]
     Indication: BREAST CANCER
     Dosage: 2.5 MG, QD
     Route: 048
     Dates: start: 20050501
  4. FEMARA [Suspect]
     Dates: start: 20060608

REACTIONS (1)
  - RETINAL DEPOSITS [None]
